FAERS Safety Report 12552181 (Version 1)
Quarter: 2016Q3

REPORT INFORMATION
  Report Type: Spontaneous
  Country: US (occurrence: US)
  Receive Date: 20160713
  Receipt Date: 20160713
  Transmission Date: 20161109
  Serious: Yes (Other)
  Sender: FDA-Public Use
  Company Number: US-ACTAVIS-2016-15063

PATIENT
  Age: 56 Year
  Sex: Male

DRUGS (2)
  1. CIPROFLOXACIN HYDROCHLORIDE (WATSON LABORATORIES) [Suspect]
     Active Substance: CIPROFLOXACIN HYDROCHLORIDE
     Indication: URINARY TRACT INFECTION
     Dosage: UNKNOWN
     Route: 065
  2. SIMVASTATIN. [Concomitant]
     Active Substance: SIMVASTATIN
     Indication: PRODUCT USED FOR UNKNOWN INDICATION
     Dosage: UNKNOWN
     Route: 065

REACTIONS (3)
  - Blood creatinine increased [Recovered/Resolved]
  - Thrombotic thrombocytopenic purpura [Recovered/Resolved]
  - Rhabdomyolysis [Recovered/Resolved]
